FAERS Safety Report 24194635 (Version 1)
Quarter: 2024Q3

REPORT INFORMATION
  Report Type: Spontaneous
  Country: US (occurrence: US)
  Receive Date: 20240809
  Receipt Date: 20240809
  Transmission Date: 20241016
  Serious: Yes (Other)
  Sender: THERATECHNOLOGIES
  Company Number: US-THERATECHNOLOGIES INC.-2024-THE-TES-000305

PATIENT

DRUGS (1)
  1. EGRIFTA SV [Suspect]
     Active Substance: TESAMORELIN ACETATE
     Indication: Lipodystrophy acquired
     Dosage: 1.4 MG, QD
     Route: 058
     Dates: start: 202308, end: 20240701

REACTIONS (1)
  - Appendicectomy [Not Recovered/Not Resolved]

NARRATIVE: CASE EVENT DATE: 20240701
